FAERS Safety Report 13155180 (Version 1)
Quarter: 2017Q1

REPORT INFORMATION
  Report Type: Spontaneous
  Country: GR (occurrence: GR)
  Receive Date: 20170126
  Receipt Date: 20170126
  Transmission Date: 20170428
  Serious: Yes (Hospitalization)
  Sender: FDA-Public Use
  Company Number: GR-SA-2017SA012872

PATIENT
  Age: 74 Year
  Sex: Male

DRUGS (1)
  1. CLOPIDOGREL BISULFATE. [Suspect]
     Active Substance: CLOPIDOGREL BISULFATE
     Route: 065

REACTIONS (5)
  - Dieulafoy^s vascular malformation [Recovering/Resolving]
  - Melaena [Recovering/Resolving]
  - Gastrointestinal haemorrhage [Recovering/Resolving]
  - Jejunal ulcer [Recovering/Resolving]
  - Haematemesis [Recovering/Resolving]
